FAERS Safety Report 23866086 (Version 1)
Quarter: 2024Q2

REPORT INFORMATION
  Report Type: Spontaneous
  Country: US (occurrence: US)
  Receive Date: 20240517
  Receipt Date: 20240517
  Transmission Date: 20240715
  Serious: Yes (Hospitalization, Other)
  Sender: FDA-Public Use
  Company Number: US-SUN PHARMACEUTICAL INDUSTRIES LTD-2024R1-446164

PATIENT
  Age: 58 Year
  Sex: Male

DRUGS (1)
  1. ALLOPURINOL [Suspect]
     Active Substance: ALLOPURINOL
     Indication: Gout
     Dosage: 300 MILLIGRAM, DAILY
     Route: 065

REACTIONS (5)
  - Chronic kidney disease [Unknown]
  - Hypertension [Unknown]
  - Diabetes mellitus [Unknown]
  - Gout [Unknown]
  - Hyperlipidaemia [Unknown]
